FAERS Safety Report 21767440 (Version 2)
Quarter: 2023Q1

REPORT INFORMATION
  Report Type: Spontaneous
  Country: FI (occurrence: FI)
  Receive Date: 20221222
  Receipt Date: 20230201
  Transmission Date: 20230417
  Serious: No
  Sender: FDA-Public Use
  Company Number: FI-PFIZER INC-202201376676

PATIENT
  Age: 55 Year
  Sex: Male

DRUGS (2)
  1. FRAGMIN [Suspect]
     Active Substance: DALTEPARIN SODIUM
     Indication: Thrombosis prophylaxis
     Dosage: UNK
  2. FRAGMIN [Suspect]
     Active Substance: DALTEPARIN SODIUM
     Indication: Coronavirus infection

REACTIONS (3)
  - Device physical property issue [Unknown]
  - Device issue [Unknown]
  - Poor quality device used [Unknown]
